FAERS Safety Report 7246922-8 (Version None)
Quarter: 2011Q1

REPORT INFORMATION
  Report Type: 
  Country: None (occurrence: None)
  Receive Date: 20110127
  Receipt Date: 20110125
  Transmission Date: 20110831
  Serious: Yes (Other)
  Sender: FDA-Public Use
  Company Number: US-ABBOTT-11P-163-0700264-00

PATIENT
  Sex: Male
  Weight: 79.45 kg

DRUGS (2)
  1. HUMIRA [Suspect]
     Indication: CROHN'S DISEASE
     Route: 058
     Dates: start: 20101101
  2. FOLIC ACID [Concomitant]
     Indication: VITAMIN SUPPLEMENTATION
     Route: 048

REACTIONS (4)
  - VISUAL FIELD DEFECT [None]
  - ARTHRALGIA [None]
  - VISION BLURRED [None]
  - DRUG EFFECT DECREASED [None]
